FAERS Safety Report 25531105 (Version 3)
Quarter: 2025Q3

REPORT INFORMATION
  Report Type: Spontaneous
  Country: US (occurrence: US)
  Receive Date: 20250708
  Receipt Date: 20250925
  Transmission Date: 20251021
  Serious: Yes (Other)
  Sender: CSL BEHRING
  Company Number: US-BEH-2025211880

PATIENT
  Age: 64 Year
  Sex: Male

DRUGS (2)
  1. HUMATE-P [Suspect]
     Active Substance: HUMAN COAGULATION FACTOR VIII/VON WILLEBRAND FACTOR COMPLEX
     Indication: Von Willebrand^s disease
     Route: 042
     Dates: start: 202406
  2. HUMATE-P [Suspect]
     Active Substance: HUMAN COAGULATION FACTOR VIII/VON WILLEBRAND FACTOR COMPLEX
     Route: 042
     Dates: start: 202406

REACTIONS (6)
  - Haemorrhage [Unknown]
  - Bone operation [Unknown]
  - Internal haemorrhage [Unknown]
  - Haemarthrosis [Unknown]
  - Haemorrhoids [Unknown]
  - Injury [Unknown]

NARRATIVE: CASE EVENT DATE: 20250630
